FAERS Safety Report 5715731-0 (Version None)
Quarter: 2008Q2

REPORT INFORMATION
  Report Type: 
  Country: None (occurrence: None)
  Receive Date: 20080423
  Receipt Date: 20080423
  Transmission Date: 20081010
  Serious: No
  Sender: FDA-Public Use
  Company Number: None

PATIENT
  Sex: Male
  Weight: 90.4 kg

DRUGS (6)
  1. BEVACIZUMAB (RHUMAB VEGF) [Suspect]
     Dosage: 900 MG
  2. LEUCOVORIN CALCIUM [Suspect]
     Dosage: 1670 MG
  3. ELOXATIN [Suspect]
     Dosage: 358 MG
  4. FLUOROURACIL [Suspect]
     Dosage: 11680 MG
  5. ALTACE [Concomitant]
  6. TOPROL-XL [Concomitant]

REACTIONS (1)
  - BLOOD PRESSURE SYSTOLIC INCREASED [None]
